FAERS Safety Report 11688960 (Version 1)
Quarter: 2015Q4

REPORT INFORMATION
  Report Type: Spontaneous
  Country: US (occurrence: None)
  Receive Date: 20151030
  Receipt Date: 20151030
  Transmission Date: 20160304
  Serious: Yes (Disabling)
  Sender: FDA-Public Use
  Company Number: None

PATIENT
  Age: 68 Year
  Sex: Male
  Weight: 79.38 kg

DRUGS (2)
  1. CIPROFLOXIN [Suspect]
     Active Substance: CIPROFLOXACIN
     Indication: SINUSITIS
     Dosage: 1 PILL
     Route: 048
     Dates: start: 20141109, end: 20141110
  2. MAGNESIUM [Concomitant]
     Active Substance: MAGNESIUM

REACTIONS (12)
  - Dyspepsia [None]
  - Abdominal discomfort [None]
  - Headache [None]
  - Hyperhidrosis [None]
  - Joint crepitation [None]
  - Arthritis [None]
  - Tendon pain [None]
  - Myalgia [None]
  - Pain in extremity [None]
  - Burning sensation [None]
  - Abdominal pain [None]
  - Neck pain [None]

NARRATIVE: CASE EVENT DATE: 20141109
